FAERS Safety Report 5058245-6 (Version None)
Quarter: 2006Q3

REPORT INFORMATION
  Report Type: 
  Country: None (occurrence: None)
  Receive Date: 20060721
  Receipt Date: 20060718
  Transmission Date: 20061208
  Serious: Yes (Life-Threatening, Hospitalization)
  Sender: FDA-Public Use
  Company Number: BR-BRACCO-BRO-010335

PATIENT
  Age: 27 Year
  Sex: Male
  Weight: 94 kg

DRUGS (2)
  1. IOPAMIRON [Suspect]
     Indication: SPINAL MYELOGRAM
     Dosage: INFUSION
     Route: 037
     Dates: start: 19981228, end: 19981228
  2. UROMIRON [Suspect]
     Route: 050
     Dates: start: 19981228, end: 19981228

REACTIONS (4)
  - CONVULSION [None]
  - PNEUMONIA [None]
  - URINARY TRACT DISORDER [None]
  - WRONG DRUG ADMINISTERED [None]
